FAERS Safety Report 6026999-8 (Version None)
Quarter: 2009Q1

REPORT INFORMATION
  Report Type: 
  Country: None (occurrence: None)
  Receive Date: 20090105
  Receipt Date: 20081224
  Transmission Date: 20090719
  Serious: Yes (Hospitalization)
  Sender: FDA-Public Use
  Company Number: JP-PFIZER INC-2009150195

PATIENT

DRUGS (2)
  1. SPIRONOLACTONE [Suspect]
     Route: 048
  2. ANGIOTENSIN II ANTAGONISTS [Suspect]

REACTIONS (2)
  - ADAMS-STOKES SYNDROME [None]
  - HYPERKALAEMIA [None]
